FAERS Safety Report 9185494 (Version 1)
Quarter: 2013Q1

REPORT INFORMATION
  Report Type: Spontaneous
  Country: JP (occurrence: None)
  Receive Date: 20130321
  Receipt Date: 20130321
  Transmission Date: 20140127
  Serious: Yes (Hospitalization)
  Sender: FDA-Public Use
  Company Number: TC12012A06834

PATIENT
  Sex: 0

DRUGS (2)
  1. NESINA [Suspect]
     Indication: DIABETES MELLITUS
     Route: 048
     Dates: start: 201206, end: 201211
  2. CORTICOSTERIODS [Concomitant]

REACTIONS (1)
  - Pancreatitis [None]
